FAERS Safety Report 24663056 (Version 1)
Quarter: 2024Q4

REPORT INFORMATION
  Report Type: Report from Study
  Country: AR (occurrence: AR)
  Receive Date: 20241126
  Receipt Date: 20241126
  Transmission Date: 20250115
  Serious: Yes (Other)
  Sender: ROCHE
  Company Number: AR-002147023-NVSC2024AR113403

PATIENT
  Sex: Female

DRUGS (2)
  1. XOLAIR [Suspect]
     Active Substance: OMALIZUMAB
     Indication: Chronic spontaneous urticaria
     Dosage: 300 MG, QMO
     Route: 058
     Dates: start: 20220610
  2. XOLAIR [Suspect]
     Active Substance: OMALIZUMAB
     Dosage: 300 MILLIGRAM PER MILLILITRE, EVERY 4 WEEKS
     Route: 058
     Dates: start: 202206, end: 202406

REACTIONS (8)
  - Oedema [Not Recovered/Not Resolved]
  - Urticaria [Not Recovered/Not Resolved]
  - Foot fracture [Recovered/Resolved]
  - Ill-defined disorder [Unknown]
  - Gait disturbance [Unknown]
  - Angioedema [Not Recovered/Not Resolved]
  - Peripheral swelling [Unknown]
  - Product supply issue [Unknown]

NARRATIVE: CASE EVENT DATE: 20240101
